FAERS Safety Report 8439958-2 (Version None)
Quarter: 2012Q2

REPORT INFORMATION
  Report Type: 
  Country: None (occurrence: None)
  Receive Date: 20120615
  Receipt Date: 20120612
  Transmission Date: 20120825
  Serious: Yes (Other)
  Sender: FDA-Public Use
  Company Number: FR-GILEAD-2012-0056515

PATIENT
  Sex: Male

DRUGS (3)
  1. REYATAZ [Suspect]
     Indication: HIV INFECTION
     Dosage: UNK
     Dates: start: 20060901, end: 20120606
  2. ISENTRESS [Suspect]
  3. TRUVADA [Suspect]
     Indication: HIV INFECTION
     Dosage: 1 DF, QD
     Route: 048
     Dates: start: 20090401, end: 20120605

REACTIONS (2)
  - RENAL COLIC [None]
  - RENAL TUBULAR DISORDER [None]
